FAERS Safety Report 6282904-0 (Version None)
Quarter: 2009Q3

REPORT INFORMATION
  Report Type: 
  Country: None (occurrence: None)
  Receive Date: 20090724
  Receipt Date: 20090716
  Transmission Date: 20100115
  Serious: Yes (Other)
  Sender: FDA-Public Use
  Company Number: B0585260A

PATIENT
  Sex: Female

DRUGS (2)
  1. ALLI [Suspect]
     Dosage: 60MG THREE TIMES PER DAY
     Route: 048
     Dates: start: 20090706
  2. LOVAZA [Concomitant]

REACTIONS (5)
  - ASTHENIA [None]
  - DIARRHOEA [None]
  - DIZZINESS [None]
  - FATIGUE [None]
  - SYNCOPE [None]
